FAERS Safety Report 5718115-4 (Version None)
Quarter: 2008Q2

REPORT INFORMATION
  Report Type: 
  Country: None (occurrence: None)
  Receive Date: 20080425
  Receipt Date: 20080416
  Transmission Date: 20081010
  Serious: No
  Sender: FDA-Public Use
  Company Number: BR-ROCHE-505707

PATIENT

DRUGS (2)
  1. ROACUTAN [Suspect]
     Indication: ACNE
     Dates: start: 20061101, end: 20070601
  2. CONTRACEPTIVE [Concomitant]
     Indication: CONTRACEPTION
     Dates: end: 20070601

REACTIONS (3)
  - NO ADVERSE EVENT [None]
  - NORMAL NEWBORN [None]
  - PREGNANCY [None]
